FAERS Safety Report 8952534 (Version 1)
Quarter: 2012Q4

REPORT INFORMATION
  Report Type: 
  Country: DK (occurrence: GB)
  Receive Date: 20121205
  Receipt Date: 20121205
  Transmission Date: 20130627
  Serious: Yes (Life-Threatening, Disabling, Other)
  Sender: FDA-Public Use
  Company Number: GB-FRI-1000040791

PATIENT
  Age: 29 Year
  Sex: Female
  Weight: 41 kg

DRUGS (2)
  1. ESCITALOPRAM [Suspect]
     Indication: DEPRESSION
     Dosage: 5 mg
     Route: 048
     Dates: start: 20101001, end: 20101004
  2. VALIUM [Concomitant]
     Indication: ANXIETY

REACTIONS (5)
  - Nausea [Recovered/Resolved]
  - Depersonalisation [Recovered/Resolved with Sequelae]
  - Dissociation [Unknown]
  - Emotional distress [Unknown]
  - Emotional poverty [Unknown]
